FAERS Safety Report 5485408-8 (Version None)
Quarter: 2007Q4

REPORT INFORMATION
  Report Type: 
  Country: None (occurrence: None)
  Receive Date: 20071002
  Receipt Date: 20060919
  Transmission Date: 20080405
  Serious: No
  Sender: FDA-Public Use
  Company Number: 2006113305

PATIENT
  Age: 60 Year
  Sex: Male
  Weight: 90.7194 kg

DRUGS (1)
  1. DEPO-TESTOSTERONE [Suspect]
     Indication: BLOOD TESTOSTERONE DECREASED
     Dosage: 200 MG (200 MG, 1 IN 2 WK)
     Dates: start: 20051101

REACTIONS (2)
  - ANGER [None]
  - FEELING ABNORMAL [None]
